FAERS Safety Report 13067893 (Version 1)
Quarter: 2016Q4

REPORT INFORMATION
  Report Type: Spontaneous
  Country: US (occurrence: US)
  Receive Date: 20161227
  Receipt Date: 20161227
  Transmission Date: 20170207
  Serious: Yes (Hospitalization)
  Sender: FDA-Public Use
  Company Number: None

PATIENT
  Sex: Female

DRUGS (10)
  1. LETAIRIS [Concomitant]
     Active Substance: AMBRISENTAN
  2. OMEPRAZOLE. [Concomitant]
     Active Substance: OMEPRAZOLE
  3. METFORMIN [Concomitant]
     Active Substance: METFORMIN HYDROCHLORIDE
  4. FLUTICASONE [Concomitant]
     Active Substance: FLUTICASONE\FLUTICASONE PROPIONATE
  5. SILDENAFIL 20 MG GREENSTONE [Suspect]
     Active Substance: SILDENAFIL
     Indication: PULMONARY ARTERIAL HYPERTENSION
     Route: 048
     Dates: start: 20130828
  6. PRAVASTATIN. [Concomitant]
     Active Substance: PRAVASTATIN
  7. ACARBOSE. [Concomitant]
     Active Substance: ACARBOSE
  8. JANUVIA [Concomitant]
     Active Substance: SITAGLIPTIN PHOSPHATE
  9. DIGOXIN. [Concomitant]
     Active Substance: DIGOXIN
  10. TORSEMIDE. [Concomitant]
     Active Substance: TORSEMIDE

REACTIONS (2)
  - Drug dose omission [None]
  - Cardiac failure [None]

NARRATIVE: CASE EVENT DATE: 2016
